FAERS Safety Report 7747565-X (Version None)
Quarter: 2011Q3

REPORT INFORMATION
  Report Type: 
  Country: None (occurrence: None)
  Receive Date: 20110913
  Receipt Date: 20110906
  Transmission Date: 20111222
  Serious: Yes (Other)
  Sender: FDA-Public Use
  Company Number: VE-ELI_LILLY_AND_COMPANY-VE201109002187

PATIENT
  Age: 64 Year
  Sex: Female

DRUGS (2)
  1. EFFIENT [Suspect]
     Indication: ACUTE CORONARY SYNDROME
     Dosage: 60 MG, LOADING DOSE
     Dates: start: 20110401
  2. EFFIENT [Suspect]
     Dosage: 10 MG, UNK

REACTIONS (1)
  - IN-STENT CORONARY ARTERY RESTENOSIS [None]
